FAERS Safety Report 16633657 (Version 2)
Quarter: 2020Q2

REPORT INFORMATION
  Report Type: Spontaneous
  Country: US (occurrence: US)
  Receive Date: 20190725
  Receipt Date: 20200427
  Transmission Date: 20200713
  Serious: No
  Sender: FDA-Public Use
  Company Number: PHEH2019US030380

PATIENT
  Age: 34 Year
  Sex: Female

DRUGS (1)
  1. LETROZOLE. [Suspect]
     Active Substance: LETROZOLE
     Indication: OVULATION INDUCTION
     Dosage: 2.5 MG, QD
     Route: 048
     Dates: start: 20190513, end: 20190518

REACTIONS (1)
  - Maternal exposure during pregnancy [Unknown]
